FAERS Safety Report 24762076 (Version 3)
Quarter: 2025Q1

REPORT INFORMATION
  Report Type: Spontaneous
  Country: US (occurrence: US)
  Receive Date: 20241221
  Receipt Date: 20250225
  Transmission Date: 20250408
  Serious: Yes (Hospitalization)
  Sender: ROCHE
  Company Number: US-ROCHE-10000160734

PATIENT
  Age: 63 Year
  Sex: Female

DRUGS (33)
  1. ITOVEBI [Suspect]
     Active Substance: INAVOLISIB
     Indication: Breast cancer metastatic
     Route: 065
     Dates: start: 20241129, end: 20241217
  2. ITOVEBI [Suspect]
     Active Substance: INAVOLISIB
     Route: 065
     Dates: start: 20241211, end: 20241217
  3. FULVESTRANT [Concomitant]
     Active Substance: FULVESTRANT
  4. TRULICITY [Concomitant]
     Active Substance: DULAGLUTIDE
  5. TRULICITY [Concomitant]
     Active Substance: DULAGLUTIDE
     Dosage: 4.5 MG/0.5 ML PEN
  6. LANTUS [Concomitant]
     Active Substance: INSULIN GLARGINE
  7. TYLENOL [Concomitant]
     Active Substance: ACETAMINOPHEN
     Dosage: TAKE 2 TABLETS
  8. albuteroL (ACCUNEB) 0.083% nebulizer solution [Concomitant]
     Indication: Wheezing
     Route: 055
  9. ALBUTEROL [Concomitant]
     Active Substance: ALBUTEROL
     Indication: Wheezing
     Dosage: 90 MCG/PUFF, INHALE 2 PUFFS EVERY 4 (FOUR) HOURS AS NEEDED
     Route: 055
  10. LIPITOR [Concomitant]
     Active Substance: ATORVASTATIN CALCIUM
     Route: 048
  11. TESSALON [Concomitant]
     Active Substance: BENZONATATE
     Indication: Cough
     Route: 048
  12. CALCIUM CARBONATE [Concomitant]
     Active Substance: CALCIUM CARBONATE
     Route: 048
  13. ZYRTEC [Concomitant]
     Active Substance: CETIRIZINE HYDROCHLORIDE
  14. VITAMIN D3 [Concomitant]
     Active Substance: CHOLECALCIFEROL
     Dosage: 25 MCG (1,000 UNIT)
     Route: 048
  15. DEXAMETHASONE [Concomitant]
     Active Substance: DEXAMETHASONE
     Dosage: 0.5 MG/5 ML SOLUTION
     Route: 048
  16. DEXTROMETHORPHAN\GUAIFENESIN [Concomitant]
     Active Substance: DEXTROMETHORPHAN\GUAIFENESIN
     Dosage: 5-100 MG/5 ML LIQD, 15 ML EVERY 4 HOURS
  17. VOLTAREN [Concomitant]
     Active Substance: DICLOFENAC SODIUM
  18. FLONASE [Concomitant]
     Active Substance: FLUTICASONE PROPIONATE
     Dosage: 50 MCG/ACTUATION NASAL SPRAY, 1 SPRAY INTO EACH NOSTRIL 2 (TWO) TIMES A DAY AS NEEDED
  19. NEURONTIN [Concomitant]
     Active Substance: GABAPENTIN
  20. GUAIFENESIN AC [Concomitant]
     Active Substance: CODEINE PHOSPHATE\GUAIFENESIN
     Indication: Cough
     Dosage: 10-100 MG/5 ML LIQUID, TAKE 5 ML BY MOUTH 3 (THREE) TIMES A DAY AS NEEDED
  21. lidocaine 2 % Soln viscous oral solution, [Concomitant]
     Route: 061
  22. LIDODERM [Concomitant]
     Active Substance: LIDOCAINE
     Route: 050
  23. IMODIUM A-D [Concomitant]
     Active Substance: LOPERAMIDE HYDROCHLORIDE
     Indication: Diarrhoea
     Route: 048
  24. CLARITIN [Concomitant]
     Active Substance: LORATADINE
     Route: 048
  25. ANTIVERT [Concomitant]
     Active Substance: MECLIZINE HYDROCHLORIDE
     Route: 048
  26. ROBAXIN [Concomitant]
     Active Substance: METHOCARBAMOL
     Route: 048
  27. DULERA [Concomitant]
     Active Substance: FORMOTEROL FUMARATE DIHYDRATE\MOMETASONE FUROATE
  28. ZOFRAN-ODT [Concomitant]
     Indication: Nausea
     Route: 048
  29. ROXICODONE [Concomitant]
     Active Substance: OXYCODONE HYDROCHLORIDE
     Indication: Pain
     Route: 048
  30. MIRALAX [Concomitant]
     Active Substance: POLYETHYLENE GLYCOL 3350
     Indication: Constipation
     Route: 048
  31. PREDNISOLONE ACETATE [Concomitant]
     Active Substance: PREDNISOLONE ACETATE
  32. COMPAZINE [Concomitant]
     Active Substance: PROCHLORPERAZINE MALEATE
     Indication: Nausea
     Route: 048
  33. PROTOPIC [Concomitant]
     Active Substance: TACROLIMUS

REACTIONS (1)
  - Diabetic ketoacidosis [Recovered/Resolved]

NARRATIVE: CASE EVENT DATE: 20241205
